FAERS Safety Report 7316170-1 (Version None)
Quarter: 2011Q1

REPORT INFORMATION
  Report Type: 
  Country: None (occurrence: None)
  Receive Date: 20110225
  Receipt Date: 20110220
  Transmission Date: 20110831
  Serious: Yes (Other)
  Sender: FDA-Public Use
  Company Number: GR-PFIZER INC-2011032007

PATIENT
  Age: 14 Day

DRUGS (3)
  1. CLEXANE [Concomitant]
     Dosage: 60 MG, 1X/DAY
     Route: 064
  2. REVATIO [Suspect]
     Indication: EISENMENGER'S SYNDROME
     Dosage: 20 MG, 2X/DAY
     Route: 064
     Dates: start: 20091224, end: 20100401
  3. LASIX [Concomitant]
     Dosage: 20 MG, 1X/DAY
     Route: 064

REACTIONS (2)
  - DRUG EXPOSURE DURING PREGNANCY [None]
  - NECROTISING COLITIS [None]
